FAERS Safety Report 16873088 (Version 1)
Quarter: 2019Q4

REPORT INFORMATION
  Report Type: Spontaneous
  Country: US (occurrence: US)
  Receive Date: 20191001
  Receipt Date: 20191001
  Transmission Date: 20200122
  Serious: No
  Sender: FDA-Public Use
  Company Number: US-009507513-1909USA002278

PATIENT
  Sex: Female

DRUGS (2)
  1. NEXPLANON [Suspect]
     Active Substance: ETONOGESTREL
     Dosage: UNIT
     Route: 059
     Dates: end: 20190807
  2. NEXPLANON [Suspect]
     Active Substance: ETONOGESTREL
     Dosage: UNIT
     Route: 059
     Dates: start: 20190830, end: 2019

REACTIONS (5)
  - Implant site inflammation [Unknown]
  - Implant site erythema [Unknown]
  - Implant site ulcer [Unknown]
  - Skin wound [Unknown]
  - Implant site swelling [Unknown]

NARRATIVE: CASE EVENT DATE: 2019
